FAERS Safety Report 19168516 (Version 1)
Quarter: 2021Q2

REPORT INFORMATION
  Report Type: Spontaneous
  Country: IE (occurrence: IE)
  Receive Date: 20210422
  Receipt Date: 20210422
  Transmission Date: 20210717
  Serious: Yes (Other)
  Sender: FDA-Public Use
  Company Number: NVSC2021IE083030

PATIENT
  Sex: Male

DRUGS (1)
  1. COSENTYX [Suspect]
     Active Substance: SECUKINUMAB
     Indication: PSORIASIS
     Dosage: 300 MG
     Route: 065

REACTIONS (4)
  - Transaminases increased [Unknown]
  - Psoriatic arthropathy [Unknown]
  - Alanine aminotransferase increased [Unknown]
  - Acute hepatitis B [Unknown]
